FAERS Safety Report 7365187-X (Version None)
Quarter: 2011Q1

REPORT INFORMATION
  Report Type: 
  Country: None (occurrence: None)
  Receive Date: 20110321
  Receipt Date: 20110309
  Transmission Date: 20110831
  Serious: Yes (Other)
  Sender: FDA-Public Use
  Company Number: US-BAYER-2011-021728

PATIENT
  Sex: Male

DRUGS (1)
  1. CIPRO [Suspect]
     Dosage: UNK

REACTIONS (1)
  - CARDIAC DISORDER [None]
